FAERS Safety Report 7275976-8 (Version None)
Quarter: 2011Q1

REPORT INFORMATION
  Report Type: 
  Country: None (occurrence: None)
  Receive Date: 20110204
  Receipt Date: 20110131
  Transmission Date: 20110831
  Serious: Yes (Other)
  Sender: FDA-Public Use
  Company Number: A0911579A

PATIENT
  Sex: Male
  Weight: 10 kg

DRUGS (2)
  1. FLIXOTIDE [Concomitant]
     Dosage: 2PUFF TWICE PER DAY
     Dates: start: 20101231
  2. AEROLIN [Suspect]
     Indication: BRONCHOSPASM
     Dosage: 2PUFF SEE DOSAGE TEXT
     Route: 065

REACTIONS (2)
  - PRODUCT QUALITY ISSUE [None]
  - CYANOSIS [None]
